FAERS Safety Report 23765455 (Version 1)
Quarter: 2024Q2

REPORT INFORMATION
  Report Type: Spontaneous
  Country: US (occurrence: US)
  Receive Date: 20240420
  Receipt Date: 20240420
  Transmission Date: 20240716
  Serious: No
  Sender: FDA-Public Use
  Company Number: US-HALEON-2168442

PATIENT
  Age: 60 Year
  Sex: Female

DRUGS (4)
  1. PARODONTAX ACTIVE GUM REPAIR WHITENING [Suspect]
     Active Substance: STANNOUS FLUORIDE
     Indication: Gingival bleeding
     Dosage: EXPDATE:20250630
  2. PARODONTAX [Suspect]
     Active Substance: STANNOUS FLUORIDE
     Indication: Gingival bleeding
  3. PARODONTAX COMPLETE PROTECTION [Suspect]
     Active Substance: STANNOUS FLUORIDE
     Indication: Gingival bleeding
     Dosage: EXPDATE:20240731
  4. PARODONTAX [Suspect]
     Active Substance: STANNOUS FLUORIDE
     Dosage: EXPDATE:20241130

REACTIONS (8)
  - Coating in mouth [Unknown]
  - Drug ineffective [Unknown]
  - Drug ineffective [Unknown]
  - Drug ineffective [Unknown]
  - Drug ineffective [Unknown]
  - Coating in mouth [Unknown]
  - Coating in mouth [Unknown]
  - Coating in mouth [Unknown]
